FAERS Safety Report 6446308-X (Version None)
Quarter: 2009Q4

REPORT INFORMATION
  Report Type: 
  Country: None (occurrence: None)
  Receive Date: 20091110
  Receipt Date: 20090903
  Transmission Date: 20100525
  Serious: No
  Sender: FDA-Public Use
  Company Number: 1000008674

PATIENT
  Age: 82 Year
  Sex: Female

DRUGS (11)
  1. SAVELLA [Suspect]
     Indication: FIBROMYALGIA
     Dosage: 12.5 MG (12.5 MG, 1 IN 1 D), ORAL : 25 MG (12.5 MG, 2 IN 1 D), OTHER : 50 MG (25 MG, 2 IN 1 D), ORAL
     Route: 048
     Dates: start: 20090801, end: 20090801
  2. SAVELLA [Suspect]
     Indication: FIBROMYALGIA
     Dosage: 250 MG (50 MG, 5 IN 1 D), ORAL
     Route: 048
     Dates: start: 20090801, end: 20090801
  3. CRESTOR [Concomitant]
  4. LEVOXYL [Concomitant]
  5. URSODIOL [Concomitant]
  6. PLAVIX [Concomitant]
  7. PRILOSEC [Concomitant]
  8. ASPIRIN [Concomitant]
  9. ATENOLOL [Concomitant]
  10. BENICAR [Concomitant]
  11. COQ10 [Concomitant]

REACTIONS (1)
  - INSOMNIA [None]
